FAERS Safety Report 13307020 (Version 1)
Quarter: 2017Q1

REPORT INFORMATION
  Report Type: Spontaneous
  Country: IL (occurrence: IL)
  Receive Date: 20170308
  Receipt Date: 20170308
  Transmission Date: 20170428
  Serious: Yes (Other)
  Sender: FDA-Public Use
  Company Number: IL-009507513-1703ISR002401

PATIENT
  Sex: Female

DRUGS (1)
  1. KEYTRUDA [Suspect]
     Active Substance: PEMBROLIZUMAB
     Indication: OVARIAN CANCER METASTATIC
     Dosage: UNK

REACTIONS (4)
  - Product use issue [Unknown]
  - Swelling face [Unknown]
  - Local swelling [Unknown]
  - Ascites [Unknown]
